FAERS Safety Report 6491022-8 (Version None)
Quarter: 2009Q4

REPORT INFORMATION
  Report Type: 
  Country: None (occurrence: None)
  Receive Date: 20091207
  Receipt Date: 20091120
  Transmission Date: 20100525
  Serious: Yes (Hospitalization)
  Sender: FDA-Public Use
  Company Number: 2009AL007407

PATIENT
  Age: 66 Year
  Sex: Male

DRUGS (4)
  1. RAMIPRIL [Suspect]
     Dosage: 5 MG; QD
  2. SPIRONOLACTONE [Suspect]
     Dosage: 12.5 MG; QD
  3. FUROSEMIDE [Concomitant]
  4. METOLAZONE [Concomitant]

REACTIONS (4)
  - AZOTAEMIA [None]
  - BLOOD SODIUM DECREASED [None]
  - DEHYDRATION [None]
  - DYSPNOEA [None]
